FAERS Safety Report 7707082-X (Version None)
Quarter: 2011Q3

REPORT INFORMATION
  Report Type: 
  Country: None (occurrence: None)
  Receive Date: 20110819
  Receipt Date: 20110810
  Transmission Date: 20111222
  Serious: Yes (Life-Threatening, Hospitalization)
  Sender: FDA-Public Use
  Company Number: TCI2011A03529

PATIENT
  Age: 62 Year
  Sex: Male

DRUGS (4)
  1. AMARYL (GLIMEPIRIDINE) [Concomitant]
  2. BASEN OD TABLETS [Concomitant]
  3. ACTOS [Suspect]
     Indication: DIABETES MELLITUS
     Dosage: 15 MG (15 MG, 1 IN 1 D), PER ORAL
     Route: 048
     Dates: start: 20091023
  4. KINEX (IEPALRESTAT) [Concomitant]

REACTIONS (4)
  - HYPOTENSION [None]
  - HYPERTENSION [None]
  - BLADDER TRANSITIONAL CELL CARCINOMA [None]
  - HYPOAESTHESIA [None]
